FAERS Safety Report 6765555-0 (Version None)
Quarter: 2010Q2

REPORT INFORMATION
  Report Type: 
  Country: None (occurrence: None)
  Receive Date: 20100611
  Receipt Date: 20100601
  Transmission Date: 20101027
  Serious: Yes (Other)
  Sender: FDA-Public Use
  Company Number: PHHY2010GB13763

PATIENT
  Age: 13 Year
  Sex: Male

DRUGS (2)
  1. TEGRETOL [Suspect]
     Dosage: 100MG MANE, AFTERNOON, NOCTE
     Route: 065
  2. TEGRETOL [Suspect]
     Dosage: 100MG MANE, 200MG AFTERNOON, 100MG NOCTE

REACTIONS (1)
  - CONVULSION [None]
